FAERS Safety Report 10367863 (Version 2)
Quarter: 2014Q3

REPORT INFORMATION
  Report Type: Spontaneous
  Country: IT (occurrence: None)
  Receive Date: 20140805
  Receipt Date: 20140819
  Transmission Date: 20150326
  Serious: Yes (Other)
  Sender: FDA-Public Use
  Company Number: AUR-APL-2014-07907

PATIENT
  Age: 64 Year
  Sex: Female

DRUGS (1)
  1. AMOXICILLIN (AMOXICILLIN) UNKNOWN [Suspect]
     Active Substance: AMOXICILLIN
     Indication: PRODUCT USED FOR UNKNOWN INDICATION
     Route: 048
     Dates: start: 20140528, end: 20140528

REACTIONS (12)
  - Hypotension [None]
  - Chills [None]
  - Rash [None]
  - Neutrophil count increased [None]
  - Nausea [None]
  - Blood glucose increased [None]
  - Haemoglobin increased [None]
  - Vision blurred [None]
  - Lymphocyte count decreased [None]
  - Erythema [None]
  - Dizziness [None]
  - Red blood cell count increased [None]

NARRATIVE: CASE EVENT DATE: 20140528
